FAERS Safety Report 8271454-8 (Version None)
Quarter: 2012Q1

REPORT INFORMATION
  Report Type: 
  Country: None (occurrence: None)
  Receive Date: 20120308
  Receipt Date: 20111122
  Transmission Date: 20120608
  Serious: No
  Sender: FDA-Public Use
  Company Number: PHEH2011US010371

PATIENT

DRUGS (1)
  1. FANAPT [Suspect]
     Dosage: 6 MG, QD, ORAL
     Route: 048

REACTIONS (1)
  - ORTHOSTATIC HYPOTENSION [None]
